FAERS Safety Report 8080603-6 (Version None)
Quarter: 2012Q1

REPORT INFORMATION
  Report Type: 
  Country: None (occurrence: None)
  Receive Date: 20120130
  Receipt Date: 20120118
  Transmission Date: 20120608
  Serious: Yes (Death)
  Sender: FDA-Public Use
  Company Number: RO-UCBSA-050142

PATIENT
  Age: 70 Year
  Sex: Female
  Weight: 50 kg

DRUGS (7)
  1. PANTOPRAZOLE [Concomitant]
     Indication: GASTRIC ULCER
     Dates: start: 20100929
  2. MADOPAR [Concomitant]
     Indication: PARKINSON'S DISEASE
     Dates: start: 20100920, end: 20101024
  3. MADOPAR [Concomitant]
     Dosage: FREQUENCY-3/4,1/2,1/2
     Dates: start: 20101025
  4. NEUPRO [Suspect]
     Indication: PARKINSON'S DISEASE
     Route: 062
     Dates: start: 20101025, end: 20110801
  5. NEUPRO [Suspect]
     Route: 062
     Dates: start: 20100922, end: 20101024
  6. ENALAPRIL [Concomitant]
     Indication: HYPERTENSION
  7. SIMVASTATIN [Concomitant]
     Indication: HYPERCHOLESTEROLAEMIA
     Dates: start: 20101030

REACTIONS (1)
  - MYOCARDIAL INFARCTION [None]
